FAERS Safety Report 22620750 (Version 1)
Quarter: 2023Q2

REPORT INFORMATION
  Report Type: Spontaneous
  Country: SI (occurrence: SI)
  Receive Date: 20230620
  Receipt Date: 20230620
  Transmission Date: 20230722
  Serious: Yes (Other)
  Sender: FDA-Public Use
  Company Number: SI-002147023-NVSC2023SI130575

PATIENT
  Age: 33 Year
  Sex: Female

DRUGS (14)
  1. ENTYVIO [Suspect]
     Active Substance: VEDOLIZUMAB
     Indication: Product used for unknown indication
     Dosage: 300 MILLIGRAM
     Route: 042
     Dates: start: 20191007
  2. ENTYVIO [Suspect]
     Active Substance: VEDOLIZUMAB
     Dosage: 300 MILLIGRAM
     Route: 042
     Dates: start: 20190826
  3. ENTYVIO [Suspect]
     Active Substance: VEDOLIZUMAB
     Dosage: 300 MILLIGRAM
     Route: 042
     Dates: start: 20191112
  4. ENTYVIO [Suspect]
     Active Substance: VEDOLIZUMAB
     Dosage: 300 MILLIGRAM
     Route: 042
     Dates: start: 20191210
  5. ENTYVIO [Suspect]
     Active Substance: VEDOLIZUMAB
     Dosage: 300 MILLIGRAM
     Route: 042
     Dates: start: 20200511
  6. ENTYVIO [Suspect]
     Active Substance: VEDOLIZUMAB
     Dosage: 300 MILLIGRAM
     Route: 042
     Dates: start: 20190520
  7. ENTYVIO [Suspect]
     Active Substance: VEDOLIZUMAB
     Dosage: 300 MILLIGRAM
     Route: 042
     Dates: start: 20201228
  8. ENTYVIO [Suspect]
     Active Substance: VEDOLIZUMAB
     Dosage: 300 MILLIGRAM
     Route: 042
     Dates: start: 20200831
  9. ENTYVIO [Suspect]
     Active Substance: VEDOLIZUMAB
     Dosage: 300 MILLIGRAM
     Route: 042
     Dates: start: 20190603
  10. IRON [Suspect]
     Active Substance: IRON
     Indication: Iron deficiency anaemia
     Dosage: 1000 MILLIGRAM
     Route: 050
     Dates: start: 20191210
  11. IRON [Suspect]
     Active Substance: IRON
     Dosage: 1000 MILLIGRAM
     Route: 050
  12. IRON [Suspect]
     Active Substance: IRON
     Dosage: 1000 MILLIGRAM
     Route: 050
     Dates: start: 20190826
  13. IRON [Suspect]
     Active Substance: IRON
     Dosage: 1000 MILLIGRAM
     Route: 050
     Dates: start: 20210610
  14. IRON [Suspect]
     Active Substance: IRON
     Dosage: 1000 MILLIGRAM
     Route: 050
     Dates: start: 20191022

REACTIONS (10)
  - Proctitis ulcerative [Unknown]
  - Mucosal haemorrhage [Unknown]
  - Cryptitis [Unknown]
  - Diarrhoea haemorrhagic [Unknown]
  - Alopecia [Not Recovered/Not Resolved]
  - Bowel movement irregularity [Unknown]
  - Haemorrhoids [Unknown]
  - Genital haemorrhage [Unknown]
  - Pain [Not Recovered/Not Resolved]
  - Pseudopolyp [Unknown]

NARRATIVE: CASE EVENT DATE: 20190901
